FAERS Safety Report 8860956 (Version 1)
Quarter: 2012Q4

REPORT INFORMATION
  Report Type: 
  Country: US (occurrence: US)
  Receive Date: 20121025
  Receipt Date: 20121025
  Transmission Date: 20130627
  Serious: No
  Sender: FDA-Public Use
  Company Number: US-AMGEN-USASP2012012618

PATIENT
  Sex: Female
  Weight: 72.56 kg

DRUGS (11)
  1. ENBREL [Suspect]
     Indication: PRODUCT USED FOR UNKNOWN INDICATION
     Dosage: 50 mg, qwk
     Route: 058
  2. PROMETRIUM                         /00110701/ [Concomitant]
     Dosage: 100 mg, UNK
  3. METHOTREXATE [Concomitant]
     Dosage: 2.5 mg, UNK
  4. METHADONE [Concomitant]
     Dosage: 5 mg, UNK
  5. ZYRTEC [Concomitant]
     Dosage: 5 mg, UNK
  6. BENADRYL                           /00000402/ [Concomitant]
     Dosage: 25 mg, UNK
  7. LYRICA [Concomitant]
     Dosage: 25 mg, UNK
  8. OXYCODONE [Concomitant]
     Dosage: 5 mg, UNK
  9. MULTIVITAMIN                       /00097801/ [Concomitant]
  10. CALCIUM D                          /00944201/ [Concomitant]
  11. LEVOXYL [Concomitant]
     Dosage: 100 UNK, UNK

REACTIONS (1)
  - Nasopharyngitis [Unknown]
